FAERS Safety Report 8479429-0 (Version None)
Quarter: 2012Q2

REPORT INFORMATION
  Report Type: 
  Country: None (occurrence: None)
  Receive Date: 20120402
  Receipt Date: 20120215
  Transmission Date: 20120825
  Serious: Yes (Hospitalization)
  Sender: FDA-Public Use
  Company Number: GXBR2012US000702

PATIENT

DRUGS (3)
  1. DOCETAXEL [Suspect]
     Indication: BREAST CANCER
     Dosage: 75 MG/M2
  2. CYCLOPHOSPHAMIDE [Concomitant]
  3. ADRIAMYCIN PFS [Concomitant]

REACTIONS (1)
  - MUCOSAL INFLAMMATION [None]
